FAERS Safety Report 5228610-2 (Version None)
Quarter: 2007Q1

REPORT INFORMATION
  Report Type: 
  Country: None (occurrence: None)
  Receive Date: 20070131
  Receipt Date: 20070116
  Transmission Date: 20070707
  Serious: Yes (Other)
  Sender: FDA-Public Use
  Company Number: B0455575A

PATIENT
  Sex: 0

DRUGS (2)
  1. EPIVIR-HBV [Suspect]
     Indication: HEPATITIS B VIRUS
  2. ADEFOVIR DIPIVOXIL KIT [Suspect]
     Indication: HEPATITIS B

REACTIONS (5)
  - CONDITION AGGRAVATED [None]
  - DRUG RESISTANCE [None]
  - GENE MUTATION IDENTIFICATION TEST POSITIVE [None]
  - HEPATITIS B VIRUS [None]
  - VIRAL INFECTION [None]
